FAERS Safety Report 19150100 (Version 6)
Quarter: 2021Q4

REPORT INFORMATION
  Report Type: Report from Study
  Country: US (occurrence: US)
  Receive Date: 20210417
  Receipt Date: 20211012
  Transmission Date: 20220303
  Serious: Yes (Hospitalization, Other)
  Sender: FDA-Public Use
  Company Number: NVSC2021US082471

PATIENT
  Age: 56 Year
  Sex: Male
  Weight: 82.1 kg

DRUGS (6)
  1. ENTRESTO [Suspect]
     Active Substance: SACUBITRIL\VALSARTAN
     Indication: Cardiomyopathy
     Dosage: 50 MG, BID (24/26 MG)
     Route: 048
     Dates: start: 20210322
  2. ENTRESTO [Suspect]
     Active Substance: SACUBITRIL\VALSARTAN
     Dosage: 100 MG, BID (49/51 MG)
     Route: 048
  3. ENTRESTO [Suspect]
     Active Substance: SACUBITRIL\VALSARTAN
     Dosage: 100 MG, BID (49/51 MG)
     Route: 048
  4. ENTRESTO [Suspect]
     Active Substance: SACUBITRIL\VALSARTAN
     Dosage: 100 MG, BID (49/51 MG)
     Route: 048
     Dates: start: 202103
  5. TIKOSYN [Suspect]
     Active Substance: DOFETILIDE
     Indication: Product used for unknown indication
     Dosage: UNK
     Route: 065
  6. COLCHICINE [Concomitant]
     Active Substance: COLCHICINE
     Indication: Myocarditis
     Dosage: 0.6 MG, QD
     Route: 048
     Dates: start: 20210110

REACTIONS (14)
  - Atrial fibrillation [Recovered/Resolved]
  - Cardiomyopathy [Unknown]
  - Palpitations [Unknown]
  - Left ventricular dysfunction [Unknown]
  - Dyspnoea [Unknown]
  - Blood pressure abnormal [Unknown]
  - Heart rate increased [Unknown]
  - C-reactive protein increased [Not Recovered/Not Resolved]
  - Arthritis [Unknown]
  - Hypokinesia [Unknown]
  - Right atrial enlargement [Unknown]
  - Heart valve incompetence [Unknown]
  - Weight decreased [Unknown]
  - Product use in unapproved indication [Unknown]

NARRATIVE: CASE EVENT DATE: 20210322
